FAERS Safety Report 16579526 (Version 2)
Quarter: 2019Q4

REPORT INFORMATION
  Report Type: Spontaneous
  Country: FR (occurrence: FR)
  Receive Date: 20190716
  Receipt Date: 20191024
  Transmission Date: 20200122
  Serious: Yes (Other)
  Sender: FDA-Public Use
  Company Number: FR-009507513-1907FRA004728

PATIENT
  Age: 85 Year
  Sex: Female

DRUGS (15)
  1. LEVEMIR [Concomitant]
     Active Substance: INSULIN DETEMIR
     Route: 058
  2. METFORMINE HCL PCH [Concomitant]
     Route: 048
  3. PANTOPRAZOLE [Concomitant]
     Active Substance: PANTOPRAZOLE
     Route: 048
  4. DIFFU-K [Concomitant]
     Active Substance: POTASSIUM CHLORIDE
     Route: 048
  5. PAROXETINE HYDROCHLORIDE. [Concomitant]
     Active Substance: PAROXETINE HYDROCHLORIDE
     Route: 048
  6. HALDOL [Concomitant]
     Active Substance: HALOPERIDOL
     Route: 048
  7. BUDESONIDE. [Concomitant]
     Active Substance: BUDESONIDE
     Route: 055
  8. STROMECTOL [Suspect]
     Active Substance: IVERMECTIN
     Indication: ACARODERMATITIS
     Dosage: 4 TABLETS, ONCE
     Route: 048
     Dates: start: 20190523, end: 20190523
  9. IMOVANE [Concomitant]
     Active Substance: ZOPICLONE
     Route: 048
  10. LASILIX [Concomitant]
     Active Substance: FUROSEMIDE
     Dosage: 80 MILLIGRAM, QD
     Route: 042
  11. TERBUTALINE SULFATE. [Concomitant]
     Active Substance: TERBUTALINE SULFATE
     Route: 055
  12. KARDEGIC [Concomitant]
     Active Substance: ASPIRIN DL-LYSINE
     Route: 048
  13. MOVICOL [Concomitant]
     Active Substance: POLYETHYLENE GLYCOL 3350\POTASSIUM CHLORIDE\SODIUM BICARBONATE\SODIUM CHLORIDE
     Route: 048
  14. SIMVASTATIN. [Concomitant]
     Active Substance: SIMVASTATIN
     Route: 048
  15. FUMAFER [Concomitant]
     Active Substance: FERROUS FUMARATE
     Route: 048

REACTIONS (2)
  - Acute pulmonary oedema [Recovered/Resolved]
  - Eosinophilia [Recovered/Resolved]

NARRATIVE: CASE EVENT DATE: 20190524
